FAERS Safety Report 9029504 (Version 2)
Quarter: 2013Q1

REPORT INFORMATION
  Report Type: Spontaneous
  Country: CH (occurrence: CH)
  Receive Date: 20130125
  Receipt Date: 20130308
  Transmission Date: 20140127
  Serious: Yes (Other)
  Sender: FDA-Public Use
  Company Number: CH-AMGEN-CHESP2013005185

PATIENT
  Age: 47 Year
  Sex: Male
  Weight: 81 kg

DRUGS (6)
  1. ENBREL [Suspect]
     Indication: PSORIATIC ARTHROPATHY
     Dosage: 50 MG, QWK
     Dates: start: 200509
  2. ENBREL [Suspect]
     Dosage: 25 MG, EVERY 2 TO 3 WEEKS
     Dates: start: 2007
  3. ENBREL [Suspect]
     Dosage: 25 MG, EVERY 6 TO 7 WEEKS
     Dates: start: 201206
  4. ENBREL [Suspect]
     Dosage: 25 MG, EVERY 8 TO 10 WEEKS
  5. SALAZOPYRIN [Suspect]
     Indication: PSORIATIC ARTHROPATHY
     Dosage: UNK
  6. METHOTREXATE SODIUM [Suspect]
     Indication: PSORIATIC ARTHROPATHY
     Dosage: UNK
     Dates: end: 2005

REACTIONS (1)
  - IgA nephropathy [Unknown]
